FAERS Safety Report 9014621 (Version 1)
Quarter: 2013Q1

REPORT INFORMATION
  Report Type: Report from Study
  Country: US (occurrence: US)
  Receive Date: 20130115
  Receipt Date: 20130115
  Transmission Date: 20140127
  Serious: Yes (Hospitalization)
  Sender: FDA-Public Use
  Company Number: US-ABBOTT-13P-163-1034741-00

PATIENT
  Sex: Female
  Weight: 3.54 kg

DRUGS (1)
  1. HUMIRA [Suspect]
     Indication: MATERNAL EXPOSURE TIMING UNSPECIFIED
     Route: 064

REACTIONS (3)
  - Jaundice [Recovered/Resolved]
  - Blood glucose decreased [Recovered/Resolved]
  - Foetal exposure during pregnancy [Unknown]
